FAERS Safety Report 9758455 (Version 1)
Quarter: 2013Q4

REPORT INFORMATION
  Report Type: Spontaneous
  Country: US (occurrence: None)
  Receive Date: 20131216
  Receipt Date: 20131216
  Transmission Date: 20140711
  Serious: No
  Sender: FDA-Public Use
  Company Number: CABO-13002469

PATIENT
  Age: 52 Year
  Sex: Male

DRUGS (1)
  1. COMETRIQ [Suspect]
     Indication: MEDULLARY THYROID CANCER
     Dosage: 140 MG, QD, ORAL?20 MG QD, ORAL

REACTIONS (4)
  - Migraine [None]
  - Nausea [None]
  - Dysphagia [None]
  - Abdominal discomfort [None]
